FAERS Safety Report 11242855 (Version 2)
Quarter: 2015Q3

REPORT INFORMATION
  Report Type: Spontaneous
  Country: JP (occurrence: JP)
  Receive Date: 20150707
  Receipt Date: 20150716
  Transmission Date: 20151125
  Serious: Yes (Other)
  Sender: FDA-Public Use
  Company Number: JP-ROCHE-1602124

PATIENT
  Age: 30 Year
  Sex: Male

DRUGS (1)
  1. ACTILYSE [Suspect]
     Active Substance: ALTEPLASE
     Indication: ISCHAEMIC STROKE
     Route: 042

REACTIONS (5)
  - Splenic infarction [Unknown]
  - Cerebral ischaemia [Unknown]
  - Pallor [Recovered/Resolved]
  - Peripheral embolism [Recovered/Resolved]
  - Renal infarct [Unknown]
